FAERS Safety Report 5504423-9 (Version None)
Quarter: 2007Q4

REPORT INFORMATION
  Report Type: 
  Country: None (occurrence: None)
  Receive Date: 20071101
  Receipt Date: 20071022
  Transmission Date: 20080405
  Serious: Yes (Death, Hospitalization)
  Sender: FDA-Public Use
  Company Number: ZA-ABBOTT-07P-143-0376235-00

PATIENT
  Sex: Female
  Weight: 65 kg

DRUGS (2)
  1. KALETRA [Suspect]
     Indication: HIV INFECTION
     Dosage: 400/100 MG
     Route: 048
     Dates: start: 20070702
  2. BACTRIM [Concomitant]
     Indication: ANTIFUNGAL PROPHYLAXIS
     Dates: start: 20060401, end: 20070731

REACTIONS (6)
  - ANXIETY [None]
  - DEATH [None]
  - HAEMOGLOBIN DECREASED [None]
  - HYPERVENTILATION [None]
  - RESPIRATORY DISTRESS [None]
  - UNEVALUABLE EVENT [None]
